FAERS Safety Report 4514762-6 (Version None)
Quarter: 2004Q4

REPORT INFORMATION
  Report Type: 
  Country: None (occurrence: None)
  Receive Date: 20041201
  Receipt Date: 20041119
  Transmission Date: 20050328
  Serious: Yes (Hospitalization)
  Sender: FDA-Public Use
  Company Number: US-JNJFOC-20040808916

PATIENT
  Sex: Female
  Weight: 39.01 kg

DRUGS (4)
  1. REMICADE [Suspect]
     Indication: RHEUMATOID ARTHRITIS
     Route: 042
  2. METHOTREXATE [Concomitant]
  3. FOLIC ACID [Concomitant]
  4. ENALAPRIL [Concomitant]

REACTIONS (3)
  - PAIN IN EXTREMITY [None]
  - SKIN WARM [None]
  - WEIGHT DECREASED [None]
